FAERS Safety Report 16699425 (Version 2)
Quarter: 2019Q3

REPORT INFORMATION
  Report Type: Spontaneous
  Country: US (occurrence: US)
  Receive Date: 20190813
  Receipt Date: 20190823
  Transmission Date: 20191004
  Serious: Yes (Hospitalization, Other)
  Sender: FDA-Public Use
  Company Number: US-THERAPEUTICSMD-2019TMD02316

PATIENT
  Age: 76 Year
  Sex: Female
  Weight: 48.07 kg

DRUGS (16)
  1. CALCIUM CARBONATE / VITAMIN D3 [CALCIUM 600 + VIT D] [Concomitant]
     Dosage: 1 TABLETS, 1X/DAY
     Route: 048
  2. ASCORBIC ACID (VITAMIN C) [Concomitant]
     Active Substance: ASCORBIC ACID
     Dosage: 1000 MG, 1X/DAY
     Route: 048
  3. LACTOBACILLUS COMBINATION NO.8 (ADULT PROBIOTIC) [Concomitant]
     Dosage: 1 DOSAGE UNITS, 1X/DAY
     Route: 048
  4. MAGNESIUM OXIDE. [Concomitant]
     Active Substance: MAGNESIUM OXIDE
     Dosage: 400 MG, 1X/DAY
     Route: 048
  5. IMVEXXY [Suspect]
     Active Substance: ESTRADIOL
     Dosage: 4 ?G, 2X/WEEK BEFORE BED ON MONDAY AND THURSDAY
     Route: 067
     Dates: start: 201906, end: 20190715
  6. ZOCOR [Concomitant]
     Active Substance: SIMVASTATIN
     Dosage: 20 MG, 1X/DAY AT BEDTIME
     Route: 048
  7. CYANOCOBALAMIN (VITAMIN B-12) [Concomitant]
     Dosage: 500 ?G, 1X/DAY
     Route: 048
  8. ASPIRIN EC [Concomitant]
     Active Substance: ASPIRIN
     Dosage: 81 MG, 1X/DAY
     Route: 048
  9. GOLDENSEAL / ECHINACEA PURPUREA [Concomitant]
     Dosage: 1 CAPSULES, 1X/DAY
     Route: 048
  10. UNSPECIFIED HIGH BLOOD PRESSURE MEDICATION [Concomitant]
     Active Substance: UNSPECIFIED INGREDIENT
     Dosage: UNK
  11. OMEPRAZOLE. [Concomitant]
     Active Substance: OMEPRAZOLE
     Dosage: 40 MG, 1X/DAY
     Route: 048
  12. MULTIVIT-MIN / FA / LYCOPEN / LUTEIN (COMPLETE MULTI 50+) [Concomitant]
     Dosage: 1 TABLETS, 1X/DAY
     Route: 048
  13. FOSAMAX [Concomitant]
     Active Substance: ALENDRONATE SODIUM
     Dosage: 70 MG, 1X/WEEK
     Route: 048
  14. ZOFRAN ODT [Concomitant]
     Active Substance: ONDANSETRON HYDROCHLORIDE
     Dosage: 4 MG, Q8HP AS NEEDED
     Route: 048
  15. CHOLECALCIFEROL (VITAMIN D3) [Concomitant]
     Dosage: 5000 IU, 1X/DAY
     Route: 048
  16. GABAPENTIN. [Concomitant]
     Active Substance: GABAPENTIN
     Dosage: 1 CAPSULES, 3X/DAY
     Route: 048

REACTIONS (12)
  - Haematemesis [Recovered/Resolved]
  - Hypokalaemia [Recovered/Resolved]
  - Procedural pain [Recovering/Resolving]
  - Nausea [Unknown]
  - Off label use [Recovered/Resolved]
  - Cholecystitis [Recovered/Resolved]
  - Gallbladder enlargement [Recovered/Resolved]
  - Hypernatraemia [Unknown]
  - Vomiting [Unknown]
  - Adjustment disorder with depressed mood [Unknown]
  - Post procedural bile leak [Recovered/Resolved]
  - Constipation [Recovered/Resolved]

NARRATIVE: CASE EVENT DATE: 201906
